FAERS Safety Report 25520155 (Version 2)
Quarter: 2025Q3

REPORT INFORMATION
  Report Type: Spontaneous
  Country: US (occurrence: US)
  Receive Date: 20250704
  Receipt Date: 20250717
  Transmission Date: 20251020
  Serious: No
  Sender: BAUSCH AND LOMB
  Company Number: US-BAUSCH-BL-2025-007894

PATIENT
  Age: 60 Year
  Sex: Male

DRUGS (3)
  1. TRULANCE [Suspect]
     Active Substance: PLECANATIDE
     Indication: Irritable bowel syndrome
     Route: 065
  2. TRULANCE [Suspect]
     Active Substance: PLECANATIDE
     Dosage: LATER ON IN THE DAY
     Route: 065
     Dates: start: 202506
  3. TRULANCE [Suspect]
     Active Substance: PLECANATIDE
     Route: 065
     Dates: start: 202506

REACTIONS (3)
  - Diarrhoea [Unknown]
  - Defaecation urgency [Unknown]
  - Proctalgia [Unknown]

NARRATIVE: CASE EVENT DATE: 20250601
